FAERS Safety Report 15983529 (Version 1)
Quarter: 2019Q1

REPORT INFORMATION
  Report Type: Spontaneous
  Country: PR (occurrence: US)
  Receive Date: 20190220
  Receipt Date: 20190220
  Transmission Date: 20190418
  Serious: Yes (Other)
  Sender: FDA-Public Use
  Company Number: PR-VIIV HEALTHCARE LIMITED-US2019GSK027352

PATIENT
  Age: 60 Year
  Sex: Female

DRUGS (1)
  1. JULUCA [Suspect]
     Active Substance: DOLUTEGRAVIR SODIUM\RILPIVIRINE HYDROCHLORIDE
     Dosage: 1 DF, QD

REACTIONS (1)
  - Blood HIV RNA increased [Unknown]
